FAERS Safety Report 7959247-X (Version None)
Quarter: 2011Q4

REPORT INFORMATION
  Report Type: 
  Country: None (occurrence: None)
  Receive Date: 20111206
  Receipt Date: 20111130
  Transmission Date: 20120403
  Serious: Yes (Hospitalization, Disabling)
  Sender: FDA-Public Use
  Company Number: US-PFIZER INC-2011276167

PATIENT
  Sex: Female
  Weight: 117.91 kg

DRUGS (7)
  1. EFFEXOR XR [Suspect]
     Indication: DISSOCIATIVE DISORDER
     Dosage: 75 MG, UNK
     Route: 048
  2. EFFEXOR XR [Suspect]
     Dosage: 150 MG, UNK
     Route: 048
  3. LITHIUM [Suspect]
     Indication: DISSOCIATIVE DISORDER
  4. EFFEXOR XR [Suspect]
     Dosage: 225 MG, UNK
     Route: 048
     Dates: end: 20111101
  5. EFFEXOR XR [Suspect]
     Indication: BIPOLAR I DISORDER
     Dosage: 37.5 MG, UNK
     Route: 048
     Dates: start: 20090101
  6. LITHIUM [Suspect]
     Indication: BIPOLAR I DISORDER
     Dosage: 900 MG, UNK
     Dates: start: 20111027, end: 20111101
  7. BUSPAR [Concomitant]
     Dosage: UNK

REACTIONS (6)
  - HEPATOMEGALY [None]
  - NAUSEA [None]
  - PANCREATITIS [None]
  - CRYING [None]
  - VOMITING [None]
  - DISABILITY [None]
